FAERS Safety Report 4321019-5 (Version None)
Quarter: 2004Q1

REPORT INFORMATION
  Report Type: 
  Country: None (occurrence: None)
  Receive Date: 20040318
  Receipt Date: 20040311
  Transmission Date: 20041129
  Serious: Yes (Disabling)
  Sender: FDA-Public Use
  Company Number: GB-SHR-04-021004

PATIENT
  Sex: Female
  Weight: 63.5 kg

DRUGS (3)
  1. MIRENA [Suspect]
     Indication: CONTRACEPTION
     Dosage: 20 UG, CONT, INTRA-UTERINE
     Route: 015
     Dates: start: 20040116, end: 20040116
  2. CIPRAMIL (CITALOPRAM HYDROBROMIDE) [Concomitant]
  3. AMOXICILLIN [Concomitant]

REACTIONS (5)
  - ABDOMINAL PAIN [None]
  - DIZZINESS [None]
  - FEELING ABNORMAL [None]
  - PAIN IN EXTREMITY [None]
  - TREMOR [None]
